FAERS Safety Report 25113545 (Version 1)
Quarter: 2025Q1

REPORT INFORMATION
  Report Type: Spontaneous
  Country: US (occurrence: None)
  Receive Date: 20250322
  Receipt Date: 20250322
  Transmission Date: 20250409
  Serious: Yes (Other)
  Sender: FDA-CTU
  Company Number: None

PATIENT
  Sex: Female

DRUGS (2)
  1. LOSARTAN [Suspect]
     Active Substance: LOSARTAN
     Indication: Hypertension
  2. SPIRONOLACTONE [Suspect]
     Active Substance: SPIRONOLACTONE

REACTIONS (13)
  - Dizziness [None]
  - Hypoglycaemia [None]
  - Diabetes mellitus [None]
  - Vitamin D decreased [None]
  - Dehydration [None]
  - Syncope [None]
  - Tachycardia [None]
  - Peripheral swelling [None]
  - Dysphagia [None]
  - Tremor [None]
  - Confusional state [None]
  - Dysgeusia [None]
  - Asthenia [None]
